FAERS Safety Report 5448997-5 (Version None)
Quarter: 2007Q3

REPORT INFORMATION
  Report Type: 
  Country: None (occurrence: None)
  Receive Date: 20070911
  Receipt Date: 20070812
  Transmission Date: 20080115
  Serious: No
  Sender: FDA-Public Use
  Company Number: FI-ASTRAZENECA-2007SE04457

PATIENT

DRUGS (1)
  1. SEROQUEL [Suspect]
     Indication: SCHIZOPHRENIA
     Route: 048
     Dates: end: 20070303

REACTIONS (1)
  - PANCYTOPENIA [None]
